FAERS Safety Report 18404499 (Version 1)
Quarter: 2020Q4

REPORT INFORMATION
  Report Type: Spontaneous
  Country: US (occurrence: US)
  Receive Date: 20201020
  Receipt Date: 20201020
  Transmission Date: 20210114
  Serious: Yes (Other)
  Sender: FDA-Public Use
  Company Number: None

PATIENT
  Age: 59 Year
  Sex: Female
  Weight: 76.66 kg

DRUGS (2)
  1. OTEZLA [Suspect]
     Active Substance: APREMILAST
     Dosage: ?          OTHER DOSE:VARIOUS;?
     Route: 048
     Dates: start: 20200701, end: 20200705
  2. OTEZLA [Suspect]
     Active Substance: APREMILAST
     Indication: PSORIASIS
     Dosage: ?          OTHER DOSE:VARIOUS;?
     Route: 048
     Dates: start: 20200701, end: 20200705

REACTIONS (3)
  - Lethargy [None]
  - Speech disorder [None]
  - General physical health deterioration [None]

NARRATIVE: CASE EVENT DATE: 20200701
